FAERS Safety Report 7954179-5 (Version None)
Quarter: 2011Q4

REPORT INFORMATION
  Report Type: 
  Country: None (occurrence: None)
  Receive Date: 20111202
  Receipt Date: 20111122
  Transmission Date: 20120403
  Serious: Yes (Hospitalization)
  Sender: FDA-Public Use
  Company Number: PL-UCBSA-046362

PATIENT
  Age: 52 Year
  Sex: Male
  Weight: 83.3 kg

DRUGS (8)
  1. ANAFRANIL [Concomitant]
     Indication: DEPRESSION
     Dates: start: 20090101
  2. BISOPROLOL FUMARATE [Concomitant]
     Indication: HYPERTENSION
     Dates: start: 20050101
  3. KETOPROFEN [Concomitant]
     Indication: SPONDYLITIS
     Dates: start: 20110427
  4. DEPAKENE [Concomitant]
     Dates: start: 20090101
  5. PRESTARIUM [Concomitant]
     Indication: HYPERTENSION
     Dates: start: 20050101
  6. CHLORPROTIXEN [Concomitant]
     Indication: DEPRESSION
     Dates: start: 20090101
  7. CERTOLIZUMAB PEGOL [Suspect]
     Indication: SPONDYLITIS
     Dosage: 200 MG
     Route: 058
     Dates: start: 20101020, end: 20111028
  8. DEPAKENE [Concomitant]
     Indication: DEPRESSION
     Dates: start: 20090101

REACTIONS (1)
  - CHOLESTEROL GRANULOMA [None]
